FAERS Safety Report 7087081-4 (Version None)
Quarter: 2010Q4

REPORT INFORMATION
  Report Type: 
  Country: None (occurrence: None)
  Receive Date: 20101106
  Receipt Date: 20101026
  Transmission Date: 20110411
  Serious: No
  Sender: FDA-Public Use
  Company Number: US-WYE-H18366310

PATIENT
  Sex: Female

DRUGS (3)
  1. PRISTIQ [Suspect]
     Indication: DEPRESSION
  2. PRISTIQ [Suspect]
  3. PRISTIQ [Suspect]
     Dosage: REDUCED HER DOSE BY ALTERNATING BETWEEN 50 MG ONE DAY AND 100 MG THE FOLLOWING DAY

REACTIONS (5)
  - ANXIETY [None]
  - DISTURBANCE IN ATTENTION [None]
  - DRUG INEFFECTIVE [None]
  - THINKING ABNORMAL [None]
  - UNEVALUABLE EVENT [None]
